FAERS Safety Report 12376103 (Version 1)
Quarter: 2016Q2

REPORT INFORMATION
  Report Type: Spontaneous
  Country: CH (occurrence: CH)
  Receive Date: 20160517
  Receipt Date: 20160517
  Transmission Date: 20160815
  Serious: Yes (Hospitalization)
  Sender: FDA-Public Use
  Company Number: CH-ELI_LILLY_AND_COMPANY-CH201605004529

PATIENT
  Age: 56 Year
  Sex: Male

DRUGS (4)
  1. TILUR [Interacting]
     Active Substance: ACEMETACIN
     Indication: BACK PAIN
     Dosage: UNK UNK, UNKNOWN
     Route: 048
     Dates: end: 20160407
  2. FLUCTINE [Interacting]
     Active Substance: FLUOXETINE HYDROCHLORIDE
     Dosage: 20 MG, QD
     Route: 048
     Dates: start: 20160416, end: 20160418
  3. IRFEN [Interacting]
     Active Substance: IBUPROFEN
     Indication: BACK PAIN
     Dosage: 600 MG, TID
     Route: 048
     Dates: start: 20160416, end: 20160417
  4. FLUCTINE [Suspect]
     Active Substance: FLUOXETINE HYDROCHLORIDE
     Indication: DEPRESSION
     Dosage: 20 MG, QD
     Route: 048
     Dates: start: 201511, end: 20160407

REACTIONS (4)
  - Spinal epidural haematoma [Recovered/Resolved]
  - Hypoaesthesia [Not Recovered/Not Resolved]
  - Drug interaction [Recovered/Resolved]
  - Back pain [Unknown]

NARRATIVE: CASE EVENT DATE: 20160417
